FAERS Safety Report 23935389 (Version 1)
Quarter: 2024Q2

REPORT INFORMATION
  Report Type: Spontaneous
  Country: US (occurrence: US)
  Receive Date: 20240604
  Receipt Date: 20240604
  Transmission Date: 20240716
  Serious: Yes (Hospitalization, Other)
  Sender: FDA-Public Use
  Company Number: US-AUROBINDO-AUR-APL-2024-026479

PATIENT
  Age: 53 Year
  Sex: Male

DRUGS (2)
  1. CARFILZOMIB [Suspect]
     Active Substance: CARFILZOMIB
     Indication: Plasma cell myeloma
     Dosage: UNK
     Route: 065
     Dates: start: 20230816
  2. CARFILZOMIB [Suspect]
     Active Substance: CARFILZOMIB
     Dosage: UNK
     Route: 065
     Dates: start: 20230915

REACTIONS (1)
  - Thrombotic microangiopathy [Recovered/Resolved]
